FAERS Safety Report 17346767 (Version 3)
Quarter: 2020Q4

REPORT INFORMATION
  Report Type: Spontaneous
  Country: CH (occurrence: CH)
  Receive Date: 20200129
  Receipt Date: 20201026
  Transmission Date: 20210113
  Serious: Yes (Death)
  Sender: FDA-Public Use
  Company Number: CH-EXELIXIS-CABO-19021730

PATIENT
  Age: 77 Year
  Sex: Male

DRUGS (13)
  1. CABOMETYX [Suspect]
     Active Substance: CABOZANTINIB S-MALATE
     Dosage: 20 MG
     Route: 048
  2. XENALON [Concomitant]
     Active Substance: SPIRONOLACTONE
  3. PANPRAX [Concomitant]
     Active Substance: PANTOPRAZOLE SODIUM
  4. TOREM [Concomitant]
     Active Substance: TORSEMIDE
  5. DUODART [Concomitant]
     Active Substance: DUTASTERIDE\TAMSULOSIN
  6. LUVIT D3 [Concomitant]
     Active Substance: CHOLECALCIFEROL
  7. ELIQUIS [Concomitant]
     Active Substance: APIXABAN
  8. ACIDUM FOLICUM STREULI [Concomitant]
     Active Substance: FOLIC ACID
  9. LOSARTAN MEPHA [Concomitant]
     Active Substance: LOSARTAN POTASSIUM
  10. NOVALGIN [Concomitant]
  11. CABOMETYX [Suspect]
     Active Substance: CABOZANTINIB S-MALATE
     Indication: HEPATOCELLULAR CARCINOMA
     Dosage: 60 MG, QD
     Route: 048
     Dates: start: 20190727, end: 20190905
  12. METO ZEROK [Concomitant]
     Active Substance: METOPROLOL SUCCINATE
  13. LOPERAMID-MEPHA [Concomitant]

REACTIONS (10)
  - Adverse event [Unknown]
  - Nausea [Unknown]
  - Vomiting [Not Recovered/Not Resolved]
  - Fatigue [Unknown]
  - Weight decreased [Unknown]
  - Quality of life decreased [Unknown]
  - Off label use [Unknown]
  - General physical health deterioration [Unknown]
  - Malignant neoplasm progression [Fatal]
  - Diarrhoea [Not Recovered/Not Resolved]
